FAERS Safety Report 9727205 (Version 3)
Quarter: 2014Q1

REPORT INFORMATION
  Report Type: Other
  Country: US (occurrence: US)
  Receive Date: 20131203
  Receipt Date: 20140212
  Transmission Date: 20141002
  Serious: Yes (Disabling, Other)
  Sender: FDA-Public Use
  Company Number: US-ACORDA-ACO_100567_2013

PATIENT
  Age: 66 Year
  Sex: Female
  Weight: 40.36 kg

DRUGS (1)
  1. AMPYRA [Suspect]
     Indication: PRODUCT USED FOR UNKNOWN INDICATION
     Dosage: 10 MG, BID
     Route: 048
     Dates: start: 20120109

REACTIONS (2)
  - Abasia [Unknown]
  - Seizure like phenomena [Unknown]
